FAERS Safety Report 5361925-6 (Version None)
Quarter: 2007Q2

REPORT INFORMATION
  Report Type: 
  Country: None (occurrence: None)
  Receive Date: 20070619
  Receipt Date: 20070611
  Transmission Date: 20071010
  Serious: Yes (Other)
  Sender: FDA-Public Use
  Company Number: US-AVENTIS-200714361US

PATIENT
  Age: 63 Year
  Sex: Female

DRUGS (3)
  1. TAXOTERE [Suspect]
     Indication: OVARIAN CANCER
     Dates: start: 20070101
  2. CARBOPLATIN [Suspect]
     Indication: OVARIAN CANCER
     Dosage: DOSE: UNK
  3. SYNTHROID [Concomitant]
     Dosage: DOSE: UNK

REACTIONS (3)
  - CARDIOVASCULAR DISORDER [None]
  - CONDITION AGGRAVATED [None]
  - EXTREMITY NECROSIS [None]
